FAERS Safety Report 10055788 (Version 1)
Quarter: 2014Q2

REPORT INFORMATION
  Report Type: Spontaneous
  Country: US (occurrence: US)
  Receive Date: 20140403
  Receipt Date: 20140403
  Transmission Date: 20141212
  Serious: Yes (Hospitalization)
  Sender: FDA-Public Use
  Company Number: US-BAYER-2014-049052

PATIENT
  Age: 39 Year
  Sex: Female

DRUGS (6)
  1. YAZ [Suspect]
  2. LEVOTHYROXINE [Concomitant]
     Dosage: 100 MCG DAILY, 90 DISPENSED EACH TIME
     Route: 048
  3. ZOLOFT [Concomitant]
     Dosage: 50 MG, DAILY
     Route: 048
  4. VICODIN [Concomitant]
     Indication: PAIN
  5. XANAX [Concomitant]
  6. CELEXA [Concomitant]

REACTIONS (1)
  - Pulmonary embolism [None]
